FAERS Safety Report 24567910 (Version 1)
Quarter: 2024Q4

REPORT INFORMATION
  Report Type: Spontaneous
  Country: FR (occurrence: FR)
  Receive Date: 20241031
  Receipt Date: 20241031
  Transmission Date: 20250115
  Serious: Yes (Death, Life-Threatening, Other)
  Sender: SANDOZ
  Company Number: FR-EMA-DD-20241023-7482645-085345

PATIENT
  Age: 46 Year
  Sex: Male

DRUGS (5)
  1. INFLIXIMAB [Suspect]
     Active Substance: INFLIXIMAB
     Indication: Pouchitis
     Dosage: 2 CYCLES OF INFLIXIMAB (5 MG/KG EACH)
     Route: 065
     Dates: start: 2016
  2. MYCOPHENOLATE MOFETIL [Suspect]
     Active Substance: MYCOPHENOLATE MOFETIL
     Indication: Cholangitis sclerosing
     Dosage: PLUS LOW DOSE
     Route: 065
     Dates: start: 2016
  3. PREDNISONE [Suspect]
     Active Substance: PREDNISONE
     Indication: Immunosuppressant drug therapy
     Dosage: 5 MG, QD
     Route: 065
     Dates: start: 2000
  4. TACROLIMUS [Suspect]
     Active Substance: TACROLIMUS
     Indication: Immunosuppressant drug therapy
     Route: 065
     Dates: start: 2000
  5. URSODIOL [Concomitant]
     Active Substance: URSODIOL
     Indication: Cholangitis sclerosing
     Route: 065
     Dates: start: 2016

REACTIONS (3)
  - Metastases to skin [Fatal]
  - Cholangiocarcinoma [Fatal]
  - Treatment failure [Unknown]

NARRATIVE: CASE EVENT DATE: 20160101
